FAERS Safety Report 10040942 (Version 2)
Quarter: 2014Q2

REPORT INFORMATION
  Report Type: Spontaneous
  Country: US (occurrence: US)
  Receive Date: 20140327
  Receipt Date: 20140609
  Transmission Date: 20141212
  Serious: No
  Sender: FDA-Public Use
  Company Number: US-PFIZER INC-2014087197

PATIENT
  Sex: Female

DRUGS (2)
  1. CHANTIX [Suspect]
     Indication: SMOKING CESSATION THERAPY
     Dosage: UNK
     Dates: start: 201403
  2. SUBOXONE [Interacting]
     Dosage: 8 MG BUPRENORPHINE/2 MG NALOXONE, 2X/DAY

REACTIONS (3)
  - Drug interaction [Unknown]
  - Nausea [Unknown]
  - Drug ineffective [Unknown]
